FAERS Safety Report 18559040 (Version 1)
Quarter: 2020Q4

REPORT INFORMATION
  Report Type: Spontaneous
  Country: DE (occurrence: DE)
  Receive Date: 20201130
  Receipt Date: 20201130
  Transmission Date: 20210114
  Serious: Yes (Hospitalization)
  Sender: FDA-Public Use
  Company Number: DE-TEVA-2020-DE-1853067

PATIENT
  Age: 93 Year
  Sex: Male

DRUGS (8)
  1. METAMIZOL [Concomitant]
     Active Substance: METAMIZOLE SODIUM
     Dosage: 500 MG, IF NECESSARY, DROPS
     Route: 048
  2. SACCHAROMYCES BOULARDII [Concomitant]
     Active Substance: SACCHAROMYCES CEREVISIAE
     Dosage: 250 MG, 1-1-0-0
     Route: 048
  3. BETAHISTIN [Concomitant]
     Active Substance: BETAHISTINE
     Dosage: 12 MG, 1-1-0-0
     Route: 048
  4. PANTOPRAZOL [Concomitant]
     Active Substance: PANTOPRAZOLE SODIUM
     Dosage: 80 MILLIGRAM DAILY; 40 MG, 1-0-1-0
     Route: 048
  5. ELOTRANS [Concomitant]
     Dosage: 1 DOSAGE FORMS DAILY;  1-0-0-0
     Route: 048
  6. METAMIZOL [Concomitant]
     Active Substance: METAMIZOLE SODIUM
     Dosage: 500 MG, 30-30-30-0, DROPS
     Route: 048
  7. TORASEMID [Suspect]
     Active Substance: TORSEMIDE
     Dosage: 10 MILLIGRAM DAILY; 10 MG, 1-0-0-0
     Route: 048
  8. SACCHAROMYCES BOULARDII [Concomitant]
     Active Substance: SACCHAROMYCES CEREVISIAE
     Dosage: 250 MG, IF NECESSARY
     Route: 048

REACTIONS (6)
  - Electrolyte imbalance [Unknown]
  - Thirst [Unknown]
  - Fatigue [Unknown]
  - Weight decreased [Unknown]
  - Pain [Unknown]
  - General physical health deterioration [Unknown]
